FAERS Safety Report 23510297 (Version 1)
Quarter: 2024Q1

REPORT INFORMATION
  Report Type: Spontaneous
  Country: US (occurrence: US)
  Receive Date: 20240211
  Receipt Date: 20240211
  Transmission Date: 20240409
  Serious: No
  Sender: FDA-Public Use
  Company Number: US-AIMMUNE THERAPEUTICS, INC.-2023AIMT00087

PATIENT

DRUGS (5)
  1. PALFORZIA [Suspect]
     Active Substance: PEANUT
     Indication: Food allergy
     Dosage: IDE (0.5MG-6MG), ONCE
     Route: 048
     Dates: start: 202209, end: 202209
  2. PALFORZIA [Suspect]
     Active Substance: PEANUT
     Dosage: 120 MG, 1X/DAY
     Route: 048
     Dates: start: 20230110, end: 20230112
  3. PALFORZIA [Suspect]
     Active Substance: PEANUT
     Dosage: 120 MG, ONCE, LAST DOSE PRIOR TO EVENTS
     Route: 048
     Dates: start: 20230111, end: 20230111
  4. PALFORZIA [Suspect]
     Active Substance: PEANUT
     Dosage: 80MG, 1XDAY, DOSE DECREASED
     Route: 048
     Dates: start: 20230113, end: 20230122
  5. PALFORZIA [Suspect]
     Active Substance: PEANUT
     Dosage: 120 MG, 1X/DAY, RE-UPDOSE
     Route: 048
     Dates: start: 20230123

REACTIONS (4)
  - Vomiting [Recovered/Resolved]
  - Nausea [Recovered/Resolved]
  - Asthma [Recovered/Resolved]
  - Wheezing [Recovered/Resolved]

NARRATIVE: CASE EVENT DATE: 20230111
